FAERS Safety Report 24770040 (Version 1)
Quarter: 2024Q4

REPORT INFORMATION
  Report Type: Spontaneous
  Country: GR (occurrence: GR)
  Receive Date: 20241224
  Receipt Date: 20241224
  Transmission Date: 20250115
  Serious: Yes (Death, Other)
  Sender: AMGEN
  Company Number: GR-AMGEN-GRCSP2024249274

PATIENT

DRUGS (1)
  1. CARFILZOMIB [Suspect]
     Active Substance: CARFILZOMIB
     Indication: Plasma cell myeloma refractory
     Dosage: UNK
     Route: 065

REACTIONS (29)
  - Blepharitis [Unknown]
  - Septic shock [Fatal]
  - Ovarian cancer [Fatal]
  - Sudden cardiac death [Fatal]
  - Encephalopathy [Fatal]
  - Death [Fatal]
  - Dry eye [Unknown]
  - Photophobia [Unknown]
  - Pleural effusion [Unknown]
  - Fatigue [Unknown]
  - Anaemia [Unknown]
  - Thrombocytopenia [Unknown]
  - Neutropenia [Unknown]
  - Vision blurred [Unknown]
  - Oedema peripheral [Unknown]
  - Gamma-glutamyltransferase increased [Unknown]
  - Rash [Unknown]
  - Diabetic retinopathy [Unknown]
  - Plasma cell myeloma refractory [Unknown]
  - Ocular toxicity [Unknown]
  - Diarrhoea [Unknown]
  - Nausea [Unknown]
  - Lacrimation increased [Unknown]
  - Blood alkaline phosphatase increased [Unknown]
  - Therapy partial responder [Unknown]
  - Decreased appetite [Unknown]
  - Arcus lipoides [Unknown]
  - Chorioretinal disorder [Unknown]
  - Conjunctivitis [Unknown]
